FAERS Safety Report 11225307 (Version 1)
Quarter: 2015Q2

REPORT INFORMATION
  Report Type: Spontaneous
  Country: MX (occurrence: MX)
  Receive Date: 20150629
  Receipt Date: 20150629
  Transmission Date: 20150821
  Serious: Yes (Other)
  Sender: FDA-Public Use
  Company Number: MX-PFIZER INC-2015212688

PATIENT
  Age: 68 Year
  Sex: Female

DRUGS (1)
  1. FIBRASE [Suspect]
     Active Substance: CHLORAMPHENICOL
     Indication: VARICOSE ULCERATION
     Dosage: UNK

REACTIONS (2)
  - Drug dose omission [Unknown]
  - Varicose ulceration [Unknown]
